FAERS Safety Report 15764903 (Version 1)
Quarter: 2018Q4

REPORT INFORMATION
  Report Type: Report from Study
  Country: US (occurrence: US)
  Receive Date: 20181227
  Receipt Date: 20181227
  Transmission Date: 20190205
  Serious: Yes (Other)
  Sender: FDA-Public Use
  Company Number: US-ROCHE-2229818

PATIENT

DRUGS (2)
  1. DIAZEPAM. [Suspect]
     Active Substance: DIAZEPAM
     Indication: BIPOLAR DISORDER
  2. DIAZEPAM. [Suspect]
     Active Substance: DIAZEPAM
     Indication: MAJOR DEPRESSION
     Route: 065

REACTIONS (17)
  - Dizziness [Unknown]
  - Sedation [Unknown]
  - Headache [Unknown]
  - Polyuria [Unknown]
  - Nausea [Unknown]
  - Thirst [Unknown]
  - Hyperhidrosis [Unknown]
  - Arrhythmia [Unknown]
  - Suicidal ideation [Unknown]
  - Vision blurred [Unknown]
  - Dyskinesia [Unknown]
  - Somnolence [Unknown]
  - Sexual dysfunction [Unknown]
  - Musculoskeletal stiffness [Unknown]
  - Diarrhoea [Unknown]
  - Weight increased [Unknown]
  - Syncope [Unknown]
